FAERS Safety Report 14480654 (Version 2)
Quarter: 2018Q3

REPORT INFORMATION
  Report Type: Spontaneous
  Country: IT (occurrence: IT)
  Receive Date: 20180202
  Receipt Date: 20180709
  Transmission Date: 20181010
  Serious: Yes (Other)
  Sender: FDA-Public Use
  Company Number: IT-PFIZER INC-2018037912

PATIENT
  Age: 45 Year
  Sex: Female
  Weight: 53 kg

DRUGS (3)
  1. FARMORUBICINA [Suspect]
     Active Substance: EPIRUBICIN HYDROCHLORIDE
     Indication: BREAST CANCER
     Dosage: 144 MG, CYCLIC
     Route: 042
     Dates: start: 20171027
  2. ENDOXAN?BAXTER [Concomitant]
     Active Substance: CYCLOPHOSPHAMIDE
     Indication: BREAST CANCER
     Dosage: 960 MG, CYCLIC
     Route: 040
     Dates: start: 20171027
  3. FLUOROURACIL AHCL [Concomitant]
     Active Substance: FLUOROURACIL
     Indication: BREAST CANCER
     Dosage: 960 MG, CYCLIC
     Route: 042
     Dates: start: 20171027

REACTIONS (3)
  - Hepatotoxicity [Recovering/Resolving]
  - Transaminases increased [Recovering/Resolving]
  - Blood lactate dehydrogenase increased [Recovering/Resolving]

NARRATIVE: CASE EVENT DATE: 20171205
